FAERS Safety Report 17621135 (Version 1)
Quarter: 2020Q2

REPORT INFORMATION
  Report Type: Spontaneous
  Country: GB (occurrence: GB)
  Receive Date: 20200403
  Receipt Date: 20200403
  Transmission Date: 20200713
  Serious: Yes (Other)
  Sender: FDA-Public Use
  Company Number: GB-ALKEM LABORATORIES LIMITED-GB-ALKEM-2019-09213

PATIENT
  Age: 18 Year
  Sex: Male
  Weight: 75 kg

DRUGS (2)
  1. LYMECYCLINE [Suspect]
     Active Substance: LYMECYCLINE
     Indication: ACNE
     Dosage: 408 MILLIGRAM, QD
     Route: 048
     Dates: start: 20190801, end: 20191007
  2. QUETIAPINE FUMARATE. [Suspect]
     Active Substance: QUETIAPINE FUMARATE
     Indication: SCHIZOPHRENIA
     Dosage: TAKING 400MG OF AN 800MG DOSE ON AVERAGE
     Route: 048
     Dates: start: 20190901, end: 20191007

REACTIONS (1)
  - Neutropenia [Unknown]

NARRATIVE: CASE EVENT DATE: 20191007
